FAERS Safety Report 8894769 (Version 1)
Quarter: 2012Q4

REPORT INFORMATION
  Report Type: 
  Country: US (occurrence: US)
  Receive Date: 20121108
  Receipt Date: 20121108
  Transmission Date: 20130627
  Serious: No
  Sender: FDA-Public Use
  Company Number: US-009507513-1211USA002721

PATIENT
  Age: 15 Year

DRUGS (2)
  1. SINGULAIR [Suspect]
     Dosage: UNK
     Dates: end: 201105
  2. GLOBULIN, IMMUNE [Concomitant]

REACTIONS (3)
  - School refusal [Recovering/Resolving]
  - Depression [Recovering/Resolving]
  - Anxiety [Recovering/Resolving]
